FAERS Safety Report 9850303 (Version 1)
Quarter: 2014Q1

REPORT INFORMATION
  Report Type: Spontaneous
  Country: ZA (occurrence: ZA)
  Receive Date: 20140128
  Receipt Date: 20140128
  Transmission Date: 20141002
  Serious: Yes (Other)
  Sender: FDA-Public Use
  Company Number: ZA-GLAXOSMITHKLINE-B0963795A

PATIENT
  Age: 16 Year
  Sex: Female

DRUGS (3)
  1. AVAMYS [Suspect]
     Indication: RHINITIS
     Route: 045
     Dates: start: 20140120, end: 20140120
  2. LEVONORGESTREL [Concomitant]
     Indication: ACNE
     Route: 065
  3. VICKS NASAL SPRAY (UNSPECIFIED) [Concomitant]
     Indication: PRODUCT USED FOR UNKNOWN INDICATION
     Route: 065

REACTIONS (4)
  - Anaphylactic reaction [Unknown]
  - Heart rate increased [Unknown]
  - Nausea [Recovered/Resolved]
  - Abdominal distension [Unknown]
